FAERS Safety Report 4609913-9 (Version None)
Quarter: 2005Q1

REPORT INFORMATION
  Report Type: 
  Country: None (occurrence: None)
  Receive Date: 20050314
  Receipt Date: 20050222
  Transmission Date: 20050727
  Serious: No
  Sender: FDA-Public Use
  Company Number: 10401

PATIENT
  Age: 7 Year
  Sex: Female

DRUGS (3)
  1. METHOTREXATE [Suspect]
     Indication: JUVENILE ARTHRITIS
     Dosage: 9 MG WEEKLY/20 MG WEEKLY, SC
     Route: 058
     Dates: end: 20010601
  2. METHOTREXATE [Suspect]
     Indication: JUVENILE ARTHRITIS
     Dosage: 9 MG WEEKLY/20 MG WEEKLY, SC
     Route: 058
     Dates: start: 19950101
  3. ETANERCEPT [Suspect]
     Indication: JUVENILE ARTHRITIS
     Dosage: 8.75 MG/WK, SC
     Route: 058
     Dates: start: 20000727, end: 20030201

REACTIONS (2)
  - FULL BLOOD COUNT DECREASED [None]
  - LYMPHOCYTE COUNT DECREASED [None]
